FAERS Safety Report 23599144 (Version 1)
Quarter: 2024Q1

REPORT INFORMATION
  Report Type: Spontaneous
  Country: CN (occurrence: None)
  Receive Date: 20240306
  Receipt Date: 20240306
  Transmission Date: 20240410
  Serious: Yes (Hospitalization)
  Sender: FDA-Public Use
  Company Number: CN-ROCHE-3520751

PATIENT
  Age: 58 Year
  Sex: Female
  Weight: 62.5 kg

DRUGS (2)
  1. SINTILIMAB [Suspect]
     Active Substance: SINTILIMAB
     Indication: Breast cancer
     Route: 041
     Dates: start: 20240220
  2. KADCYLA [Suspect]
     Active Substance: ADO-TRASTUZUMAB EMTANSINE
     Indication: Breast cancer
     Route: 041
     Dates: start: 20240220

REACTIONS (1)
  - Platelet count decreased [Recovering/Resolving]

NARRATIVE: CASE EVENT DATE: 20240226
